FAERS Safety Report 6718605-1 (Version None)
Quarter: 2010Q2

REPORT INFORMATION
  Report Type: 
  Country: None (occurrence: None)
  Receive Date: 20100505
  Receipt Date: 20100422
  Transmission Date: 20101027
  Serious: Yes (Other)
  Sender: FDA-Public Use
  Company Number: 229-20484-09121759

PATIENT
  Sex: Male
  Weight: 2.25 kg

DRUGS (8)
  1. INNOHEP [Suspect]
     Indication: DRUG EXPOSURE DURING PREGNANCY
     Dosage: TRANSPLACENTAL
     Route: 064
     Dates: start: 20051130, end: 20060530
  2. STEMETIL (PROCHLORPERAZINE) [Concomitant]
  3. DEXAMETHASONE [Concomitant]
  4. METHADONE HCL [Concomitant]
  5. CIPRAMIL (CITALOPRAM) [Concomitant]
  6. BECONASE [Concomitant]
  7. VENTOLIN [Concomitant]
  8. ENOXAPARIN SODIUM [Concomitant]

REACTIONS (4)
  - APGAR SCORE LOW [None]
  - CAESAREAN SECTION [None]
  - MATERNAL DRUGS AFFECTING FOETUS [None]
  - PREMATURE BABY [None]
